FAERS Safety Report 5215940-3 (Version None)
Quarter: 2007Q1

REPORT INFORMATION
  Report Type: 
  Country: None (occurrence: None)
  Receive Date: 20070123
  Receipt Date: 20070117
  Transmission Date: 20070707
  Serious: Yes (Other)
  Sender: FDA-Public Use
  Company Number: 2006UW19327

PATIENT
  Age: 57 Year
  Sex: Female
  Weight: 67.7 kg

DRUGS (1)
  1. TAMOXIFEN CITRATE [Suspect]
     Route: 048

REACTIONS (3)
  - DEPRESSION [None]
  - MALAISE [None]
  - SUICIDAL IDEATION [None]
